FAERS Safety Report 5418033-5 (Version None)
Quarter: 2007Q3

REPORT INFORMATION
  Report Type: 
  Country: None (occurrence: None)
  Receive Date: 20070817
  Receipt Date: 20070507
  Transmission Date: 20080115
  Serious: No
  Sender: FDA-Public Use
  Company Number: A0648707A

PATIENT
  Sex: Male

DRUGS (1)
  1. BEXXAR [Suspect]
     Indication: NON-HODGKIN'S LYMPHOMA
     Route: 042
     Dates: start: 20070412, end: 20070412

REACTIONS (10)
  - ASTHENIA [None]
  - BACK PAIN [None]
  - CHILLS [None]
  - FATIGUE [None]
  - INTERMITTENT CLAUDICATION [None]
  - PAIN IN EXTREMITY [None]
  - PERIPHERAL COLDNESS [None]
  - PYREXIA [None]
  - RASH [None]
  - UPPER RESPIRATORY TRACT INFECTION [None]
